FAERS Safety Report 15455328 (Version 1)
Quarter: 2018Q3

REPORT INFORMATION
  Report Type: Spontaneous
  Country: US (occurrence: US)
  Receive Date: 20180925
  Receipt Date: 20180925
  Transmission Date: 20181010
  Serious: No
  Sender: FDA-Public Use
  Company Number: None

PATIENT
  Age: 47 Year
  Sex: Male
  Weight: 75.3 kg

DRUGS (7)
  1. REFLAN [Concomitant]
     Active Substance: LANSOPRAZOLE
  2. NEUPOGEN [Concomitant]
     Active Substance: FILGRASTIM
  3. LONSURF [Suspect]
     Active Substance: TIPIRACIL HYDROCHLORIDE\TRIFLURIDINE
     Indication: RECTAL CANCER
     Route: 048
     Dates: start: 20180905
  4. TRAMADOL. [Concomitant]
     Active Substance: TRAMADOL
  5. CHORPROMAZINE [Concomitant]
  6. LONSURF [Suspect]
     Active Substance: TIPIRACIL HYDROCHLORIDE\TRIFLURIDINE
     Indication: RECTAL CANCER
     Route: 048
     Dates: start: 20180905
  7. BACLOFEN. [Concomitant]
     Active Substance: BACLOFEN

REACTIONS (2)
  - Fatigue [None]
  - Nausea [None]

NARRATIVE: CASE EVENT DATE: 20180918
